FAERS Safety Report 19813736 (Version 1)
Quarter: 2021Q3

REPORT INFORMATION
  Report Type: Report from Study
  Country: US (occurrence: US)
  Receive Date: 20210909
  Receipt Date: 20210909
  Transmission Date: 20211014
  Serious: Yes (Other)
  Sender: FDA-Public Use
  Company Number: US-ROCHE-2905149

PATIENT
  Age: 59 Year
  Sex: Male
  Weight: 144.3 kg

DRUGS (6)
  1. LEUCOVORIN CALCIUM. [Suspect]
     Active Substance: LEUCOVORIN CALCIUM
     Indication: COLON CANCER STAGE III
     Dosage: LAST ADMINISTERED ON: 10/AUG/2021?400MG/M2 IV OVER 2 HOURS ON DAY 1?TOTAL DOSE ADMINISTERED: 968 MG
     Route: 042
     Dates: start: 20210615
  2. MAGNESIUM [Suspect]
     Active Substance: MAGNESIUM
     Indication: DIARRHOEA
     Dosage: SUBSEQUENT DOSE:19/AUG/2021
     Route: 042
     Dates: start: 20210817
  3. 5?FLUOROURACIL [Suspect]
     Active Substance: FLUOROURACIL
     Indication: COLON CANCER STAGE III
     Dosage: LAST ADMINISTERED ON: 10/AUG/2021?400MG/M2 IV (BOLUS) ON DAY 1 FOLLOWED BY 2400MG/M2 IV OVER 46 HOUR
     Route: 040
     Dates: start: 20210615
  4. OXALIPLATIN. [Suspect]
     Active Substance: OXALIPLATIN
     Indication: COLON CANCER STAGE III
     Dosage: LAST ADMINISTERED ON: 10/AUG/2021?85MG/M2 IV OVER 2 HOURS ON DAY 1?TOTAL DOSE ADMINISTERED: 206 MG
     Route: 042
     Dates: start: 20210615
  5. ATEZOLIZUMAB. [Suspect]
     Active Substance: ATEZOLIZUMAB
     Indication: COLON CANCER STAGE III
     Dosage: ON DAY 1?LAST ADMINISTERED ON: 10/AUG/2021?TOTAL DOSE ADMINISTERED: 840 MG
     Route: 041
     Dates: start: 20210629
  6. POTASSIUM [Suspect]
     Active Substance: POTASSIUM
     Indication: DIARRHOEA
     Route: 042
     Dates: start: 20210819

REACTIONS (2)
  - Diarrhoea [Recovering/Resolving]
  - Hypokalaemia [Recovered/Resolved]

NARRATIVE: CASE EVENT DATE: 20210815
